FAERS Safety Report 6925937-0 (Version None)
Quarter: 2010Q3

REPORT INFORMATION
  Report Type: 
  Country: None (occurrence: None)
  Receive Date: 20100816
  Receipt Date: 20100810
  Transmission Date: 20110219
  Serious: Yes (Other)
  Sender: FDA-Public Use
  Company Number: PHHY2010IT52876

PATIENT
  Sex: Male

DRUGS (2)
  1. STALEVO 100 [Suspect]
     Indication: PARKINSON'S DISEASE
     Dosage: 100 MG, QD
     Route: 048
     Dates: start: 20090116, end: 20090127
  2. AMANTADINE HCL [Concomitant]
     Dosage: 100 MG, QD
     Route: 048

REACTIONS (3)
  - DYSPLASTIC NAEVUS SYNDROME [None]
  - MALIGNANT MELANOMA IN SITU [None]
  - SKIN NEOPLASM EXCISION [None]
